FAERS Safety Report 10814696 (Version 2)
Quarter: 2016Q1

REPORT INFORMATION
  Report Type: Report from Study
  Country: US (occurrence: US)
  Receive Date: 20150218
  Receipt Date: 20160125
  Transmission Date: 20160525
  Serious: No
  Sender: FDA-Public Use
  Company Number: US-ABBVIE-14K-163-1278188-00

PATIENT
  Age: 40 Year
  Sex: Male
  Weight: 79.45 kg

DRUGS (6)
  1. OLUX [Concomitant]
     Active Substance: CLOBETASOL PROPIONATE
     Indication: PSORIASIS
     Route: 061
  2. HUMIRA [Suspect]
     Active Substance: ADALIMUMAB
     Indication: PSORIASIS
     Route: 065
     Dates: start: 20140626, end: 20140912
  3. SALEX [Concomitant]
     Active Substance: SALICYLIC ACID
     Indication: PSORIASIS
     Route: 061
  4. ULTRAVATE WITH LACTIC ACID [Concomitant]
     Indication: PSORIASIS
  5. MULTIVITAMIN [Concomitant]
     Active Substance: VITAMINS
     Indication: VITAMIN SUPPLEMENTATION
  6. HUMIRA [Suspect]
     Active Substance: ADALIMUMAB
     Indication: PSORIASIS
     Route: 065
     Dates: start: 20140619, end: 20140619

REACTIONS (2)
  - Vitiligo [Not Recovered/Not Resolved]
  - Psoriasis [Unknown]

NARRATIVE: CASE EVENT DATE: 20140911
